FAERS Safety Report 8826620 (Version 1)
Quarter: 2012Q4

REPORT INFORMATION
  Report Type: 
  Country: US (occurrence: US)
  Receive Date: 20121007
  Receipt Date: 20121007
  Transmission Date: 20130627
  Serious: Yes (Other)
  Sender: FDA-Public Use
  Company Number: PHHY2011US117355

PATIENT
  Sex: Male

DRUGS (3)
  1. METOPROLOL [Suspect]
     Route: 064
  2. DIGOXIN [Suspect]
     Route: 064
  3. GLYCERYL TRINITRATE [Suspect]
     Route: 064

REACTIONS (14)
  - Encephalomalacia [Unknown]
  - Morning glory syndrome [Unknown]
  - Optic neuropathy [Unknown]
  - Retinal pigmentation [Unknown]
  - Altered visual depth perception [Unknown]
  - Coloboma [Unknown]
  - Strabismus [Unknown]
  - Eye movement disorder [Unknown]
  - Extraocular muscle disorder [Unknown]
  - Astigmatism [Unknown]
  - Oculoauriculovertebral dysplasia [Unknown]
  - Cleft palate [Unknown]
  - Alopecia [Unknown]
  - Foetal exposure during pregnancy [Unknown]
